FAERS Safety Report 5163566-2 (Version None)
Quarter: 2006Q4

REPORT INFORMATION
  Report Type: 
  Country: None (occurrence: None)
  Receive Date: 20061124
  Receipt Date: 20061114
  Transmission Date: 20070319
  Serious: Yes (Other)
  Sender: FDA-Public Use
  Company Number: 2006141428

PATIENT
  Age: 58 Year
  Sex: Female
  Weight: 55.3388 kg

DRUGS (8)
  1. XALATAN [Suspect]
     Indication: GLAUCOMA
     Dosage: 2 DROPS (1 D), OPHTHALMIC
     Route: 047
  2. LIBRIUM [Suspect]
     Indication: DETOXIFICATION
     Dosage: 2 TABLETS (EVERY 6 HOURS)
     Dates: start: 20061109, end: 20061112
  3. DIOVAN [Concomitant]
  4. NORVASC [Concomitant]
  5. VIOXX [Concomitant]
  6. NAPROXEN [Concomitant]
  7. FLEXERIL [Concomitant]
  8. VITAMIN CAP [Concomitant]

REACTIONS (8)
  - ALCOHOL POISONING [None]
  - ASPARTATE AMINOTRANSFERASE INCREASED [None]
  - BLOOD CHOLESTEROL INCREASED [None]
  - EYE DISORDER [None]
  - FATIGUE [None]
  - GAMMA-GLUTAMYLTRANSFERASE INCREASED [None]
  - SOMNOLENCE [None]
  - VISION BLURRED [None]
